FAERS Safety Report 5132289-8 (Version None)
Quarter: 2006Q4

REPORT INFORMATION
  Report Type: 
  Country: None (occurrence: None)
  Receive Date: 20061019
  Receipt Date: 20061019
  Transmission Date: 20070319
  Serious: Yes (Hospitalization)
  Sender: FDA-Public Use
  Company Number: None

PATIENT
  Age: 74 Year
  Sex: Male
  Weight: 70.1 kg

DRUGS (3)
  1. BACTRIM DS [Suspect]
  2. PROCHLORPERAZINE [Concomitant]
  3. PREDNISONE TAB [Concomitant]

REACTIONS (3)
  - NAUSEA [None]
  - RASH [None]
  - VOMITING [None]
